FAERS Safety Report 7120092-9 (Version None)
Quarter: 2010Q4

REPORT INFORMATION
  Report Type: 
  Country: None (occurrence: None)
  Receive Date: 20101123
  Receipt Date: 20101117
  Transmission Date: 20110411
  Serious: Yes (Life-Threatening)
  Sender: FDA-Public Use
  Company Number: JP-ABBOTT-09P-087-0584093-00

PATIENT
  Sex: Male

DRUGS (8)
  1. NORVIR [Suspect]
     Indication: HIV INFECTION
     Route: 048
     Dates: start: 20040831, end: 20090406
  2. TENOFOVIR DISOPROXIL FUMARATE [Suspect]
     Indication: HIV INFECTION
     Route: 048
     Dates: start: 20040831, end: 20090406
  3. LAMIVUDINE [Suspect]
     Indication: HIV INFECTION
     Route: 048
     Dates: start: 20040831, end: 20090406
  4. ATAZANAVIR [Suspect]
     Indication: HIV INFECTION
     Route: 048
     Dates: start: 20040831, end: 20090406
  5. CISPLATIN [Concomitant]
     Indication: LUNG ADENOCARCINOMA
     Dates: start: 20080408, end: 20080709
  6. CISPLATIN [Concomitant]
  7. GEMCITABINE HCL [Concomitant]
     Indication: PRODUCT USED FOR UNKNOWN INDICATION
     Dates: start: 20080408, end: 20080709
  8. GEMCITABINE HCL [Concomitant]

REACTIONS (5)
  - ALTERED STATE OF CONSCIOUSNESS [None]
  - BRAIN CANCER METASTATIC [None]
  - PYREXIA [None]
  - SUBDURAL HAEMATOMA [None]
  - TUMOUR HAEMORRHAGE [None]
